FAERS Safety Report 7087983-9 (Version None)
Quarter: 2010Q4

REPORT INFORMATION
  Report Type: 
  Country: None (occurrence: None)
  Receive Date: 20101108
  Receipt Date: 20101101
  Transmission Date: 20110411
  Serious: Yes (Other)
  Sender: FDA-Public Use
  Company Number: JP-BRISTOL-MYERS SQUIBB COMPANY-14856595

PATIENT
  Age: 85 Year
  Sex: Female

DRUGS (6)
  1. IRBETAN [Suspect]
     Indication: HYPERTENSION
     Route: 048
     Dates: start: 20090310, end: 20090929
  2. NORVASC [Concomitant]
     Indication: HYPERTENSION
     Dates: end: 20090929
  3. LOXONIN [Concomitant]
     Dates: end: 20090929
  4. SELBEX [Concomitant]
     Indication: PROPHYLAXIS
     Dates: end: 20090929
  5. LASIX [Concomitant]
     Dates: end: 20090929
  6. FERROUS CITRATE [Concomitant]
     Indication: ANAEMIA
     Dates: end: 20090929

REACTIONS (3)
  - ANAEMIA [None]
  - CONDITION AGGRAVATED [None]
  - RENAL IMPAIRMENT [None]
